FAERS Safety Report 6607609-5 (Version None)
Quarter: 2010Q1

REPORT INFORMATION
  Report Type: 
  Country: None (occurrence: None)
  Receive Date: 20100129
  Receipt Date: 20100118
  Transmission Date: 20100710
  Serious: Yes (Other)
  Sender: FDA-Public Use
  Company Number: WSDF_00626

PATIENT
  Sex: Female
  Weight: 63.5036 kg

DRUGS (1)
  1. WINRHO SDF LIQUID [Suspect]
     Indication: IDIOPATHIC THROMBOCYTOPENIC PURPURA
     Dosage: 40.94?G/KG TOTAL INTRAVENOUS (NOT OTHERWISE SPECIFIED)
     Dates: start: 20070213, end: 20070213

REACTIONS (4)
  - ANAPHYLACTIC REACTION [None]
  - FACIAL PAIN [None]
  - HYPERSENSITIVITY [None]
  - PAIN IN JAW [None]
